FAERS Safety Report 8010182-0 (Version None)
Quarter: 2011Q4

REPORT INFORMATION
  Report Type: 
  Country: None (occurrence: None)
  Receive Date: 20111228
  Receipt Date: 20111219
  Transmission Date: 20120403
  Serious: Yes (Hospitalization)
  Sender: FDA-Public Use
  Company Number: IL-SANOFI-AVENTIS-2011SA083373

PATIENT
  Age: 62 Year
  Sex: Male
  Weight: 95 kg

DRUGS (9)
  1. FOSALAN [Concomitant]
     Indication: OSTEOPOROSIS
     Route: 048
     Dates: start: 20080228
  2. SIMVASTATIN [Concomitant]
     Route: 048
     Dates: start: 20070102
  3. REPAGLINIDE [Suspect]
     Indication: DIABETES MELLITUS
     Route: 048
     Dates: start: 20110715
  4. RAMIPRIL [Concomitant]
     Route: 048
     Dates: start: 20110508
  5. OMEPRAZOLE [Concomitant]
     Route: 048
     Dates: start: 20070205
  6. INSULIN GLARGINE [Suspect]
     Indication: TYPE 2 DIABETES MELLITUS
     Dates: start: 20110508
  7. JANUVIA [Suspect]
     Indication: DIABETES MELLITUS
     Route: 048
     Dates: start: 20101207
  8. ASPIRIN [Concomitant]
     Route: 048
     Dates: start: 20051110
  9. ALL OTHER THERAPEUTIC PRODUCTS [Concomitant]
     Route: 048
     Dates: start: 20110630

REACTIONS (3)
  - URINARY RETENTION [None]
  - HYPOGLYCAEMIA [None]
  - ASTHENIA [None]
